FAERS Safety Report 6860060-5 (Version None)
Quarter: 2010Q3

REPORT INFORMATION
  Report Type: 
  Country: None (occurrence: None)
  Receive Date: 20100720
  Receipt Date: 20100716
  Transmission Date: 20110219
  Serious: Yes (Hospitalization, Other)
  Sender: FDA-Public Use
  Company Number: FR-BRISTOL-MYERS SQUIBB COMPANY-14988638

PATIENT
  Age: 41 Year
  Sex: Male

DRUGS (4)
  1. COUMADIN [Suspect]
     Indication: ISCHAEMIC STROKE
     Route: 048
     Dates: start: 20100205, end: 20100208
  2. ORGARAN [Suspect]
     Indication: HEPARIN-INDUCED THROMBOCYTOPENIA
     Dosage: 1 DF = 750 IU ANTIXA/0.6 ML  ALSO ADMINISTERED 1500 IU X 2/D
     Route: 058
     Dates: start: 20100130, end: 20100208
  3. LOVENOX [Suspect]
     Indication: PROPHYLAXIS
     Dates: start: 20100122
  4. CALCIPARINE [Suspect]
     Dates: start: 20100126

REACTIONS (3)
  - ANAEMIA [None]
  - MUSCLE HAEMORRHAGE [None]
  - RENAL FAILURE [None]
